FAERS Safety Report 11391928 (Version 1)
Quarter: 2015Q3

REPORT INFORMATION
  Report Type: Report from Study
  Country: JP (occurrence: None)
  Receive Date: 20150814
  Receipt Date: 20150814
  Transmission Date: 20151125
  Serious: Yes (Other)
  Sender: FDA-Public Use
  Company Number: 2015-001616

PATIENT
  Age: 84 Year
  Sex: Female

DRUGS (9)
  1. ACTONEL [Suspect]
     Active Substance: RISEDRONATE SODIUM
     Indication: OSTEOPOROSIS
     Dates: start: 20131004, end: 20140904
  2. ARTIST (CARVEDILOL) [Concomitant]
  3. LENDORMIN (BROTIZOLAM) [Concomitant]
  4. WARFARIN [Concomitant]
     Active Substance: WARFARIN
  5. BLOPRESS (CANDESARTAN CILEXETIL) [Concomitant]
     Active Substance: CANDESARTAN CILEXETIL
  6. TAKEPRON (LANSOPRAZOLE) [Concomitant]
     Active Substance: LANSOPRAZOLE
  7. LASIX [Concomitant]
     Active Substance: FUROSEMIDE
  8. VITAMIN D3 [Suspect]
     Active Substance: CHOLECALCIFEROL
     Indication: OSTEOPOROSIS
     Route: 048
     Dates: end: 20140508
  9. ZETIA [Concomitant]
     Active Substance: EZETIMIBE

REACTIONS (1)
  - Hypercalcaemia [None]

NARRATIVE: CASE EVENT DATE: 20140507
